FAERS Safety Report 7438412-4 (Version None)
Quarter: 2011Q2

REPORT INFORMATION
  Report Type: 
  Country: None (occurrence: None)
  Receive Date: 20110426
  Receipt Date: 20110404
  Transmission Date: 20111010
  Serious: Yes (Hospitalization, Other)
  Sender: FDA-Public Use
  Company Number: US-BAYER-201037144NA

PATIENT
  Age: 43 Year
  Sex: Female
  Weight: 71 kg

DRUGS (5)
  1. YAZ [Suspect]
     Indication: PREMENSTRUAL SYNDROME
  2. YAZ [Suspect]
     Indication: ORAL CONTRACEPTION
     Dosage: UNK UNK, UNK
     Route: 048
     Dates: start: 20070301, end: 20070327
  3. SERTRALINE HYDROCHLORIDE [Concomitant]
     Dosage: 50 MG, UNK
     Route: 048
  4. YAZ [Suspect]
  5. CONTRACEPTIVES NOS [Concomitant]
     Dosage: UNK
     Route: 048
     Dates: start: 19800101, end: 20080101

REACTIONS (1)
  - PULMONARY EMBOLISM [None]
